FAERS Safety Report 6285919-1 (Version None)
Quarter: 2009Q3

REPORT INFORMATION
  Report Type: 
  Country: None (occurrence: None)
  Receive Date: 20090728
  Receipt Date: 20080729
  Transmission Date: 20100115
  Serious: No
  Sender: FDA-Public Use
  Company Number: A0733687A

PATIENT
  Age: 70 Year
  Sex: Female
  Weight: 73.6 kg

DRUGS (4)
  1. DYAZIDE [Suspect]
     Route: 048
     Dates: start: 19880101
  2. SYNTHROID [Concomitant]
  3. PREVACID [Concomitant]
  4. OGEN [Concomitant]

REACTIONS (4)
  - DRUG ADMINISTRATION ERROR [None]
  - DRUG INEFFECTIVE [None]
  - DYSGEUSIA [None]
  - PRODUCT QUALITY ISSUE [None]
